FAERS Safety Report 25676300 (Version 1)
Quarter: 2025Q3

REPORT INFORMATION
  Report Type: Report from Study
  Country: PH (occurrence: PH)
  Receive Date: 20250813
  Receipt Date: 20250813
  Transmission Date: 20251020
  Serious: Yes (Death)
  Sender: OTSUKA
  Company Number: PH-MMM-Otsuka-GWPY1MIH

PATIENT
  Sex: Male

DRUGS (2)
  1. TOLVAPTAN [Suspect]
     Active Substance: TOLVAPTAN
     Indication: Swelling
     Dosage: 0.5 DF, QD (15 MG HALF TABLET ONCE A DAY)
     Route: 048
     Dates: end: 20250717
  2. TOLVAPTAN [Suspect]
     Active Substance: TOLVAPTAN
     Indication: Oliguria

REACTIONS (4)
  - Renal disorder [Fatal]
  - Liver disorder [Fatal]
  - Wrong technique in product usage process [Unknown]
  - Underdose [Unknown]
